FAERS Safety Report 7471245-1 (Version None)
Quarter: 2011Q2

REPORT INFORMATION
  Report Type: 
  Country: None (occurrence: None)
  Receive Date: 20110510
  Receipt Date: 20091120
  Transmission Date: 20111010
  Serious: Yes (Other)
  Sender: FDA-Public Use
  Company Number: DE-GENENTECH-318193

PATIENT
  Sex: Female

DRUGS (1)
  1. LUCENTIS [Suspect]
     Indication: AGE-RELATED MACULAR DEGENERATION
     Dosage: UNK
     Route: 031
     Dates: start: 20090806

REACTIONS (10)
  - RETINAL DISORDER [None]
  - CATARACT [None]
  - GASTROINTESTINAL BACTERIAL INFECTION [None]
  - VISUAL ACUITY REDUCED [None]
  - EYE HAEMORRHAGE [None]
  - VITREOUS FLOATERS [None]
  - CARDIOVASCULAR DISORDER [None]
  - NASOPHARYNGITIS [None]
  - RETINAL SCAR [None]
  - VISION BLURRED [None]
